FAERS Safety Report 10993281 (Version 1)
Quarter: 2015Q2

REPORT INFORMATION
  Report Type: Spontaneous
  Country: BR (occurrence: BR)
  Receive Date: 20150407
  Receipt Date: 20150407
  Transmission Date: 20150821
  Serious: Yes (Other)
  Sender: FDA-Public Use
  Company Number: BR-AUROBINDO-AUR-APL-2015-02914

PATIENT
  Age: 45 Year
  Sex: Male

DRUGS (2)
  1. INTERFERON [Suspect]
     Active Substance: INTERFERON
     Indication: PRODUCT USED FOR UNKNOWN INDICATION
     Dosage: UNK
     Route: 065
  2. CITALOPRAM [Suspect]
     Active Substance: CITALOPRAM HYDROBROMIDE
     Indication: DEPRESSIVE SYMPTOM
     Dosage: 40 MG, DAILY
     Route: 065

REACTIONS (7)
  - Depressed mood [Recovering/Resolving]
  - Depression [Recovering/Resolving]
  - Apathy [Unknown]
  - Suicidal ideation [Unknown]
  - Fatigue [Unknown]
  - Myalgia [Unknown]
  - Psychiatric symptom [Unknown]
